FAERS Safety Report 8679325 (Version 18)
Quarter: 2021Q1

REPORT INFORMATION
  Report Type: Report from Study
  Country: CA (occurrence: CA)
  Receive Date: 20120724
  Receipt Date: 20210331
  Transmission Date: 20210420
  Serious: Yes (Other)
  Sender: FDA-Public Use
  Company Number: PHHY2012CA005949

PATIENT
  Age: 65 Year
  Sex: Female

DRUGS (17)
  1. SANDOSTATIN LAR DEPOT [Suspect]
     Active Substance: OCTREOTIDE ACETATE
     Indication: NEUROENDOCRINE TUMOUR
     Dosage: 30 MG, QMO (EVERY 4 WEEKS)
     Route: 030
     Dates: start: 20120118
  2. CLONAZEPAM. [Concomitant]
     Active Substance: CLONAZEPAM
     Indication: PRODUCT USED FOR UNKNOWN INDICATION
     Route: 065
  3. SEROQUEL [Concomitant]
     Active Substance: QUETIAPINE FUMARATE
     Indication: PRODUCT USED FOR UNKNOWN INDICATION
     Route: 065
  4. SERTRALINE [Concomitant]
     Active Substance: SERTRALINE HYDROCHLORIDE
     Dosage: 150 MG, QD
     Route: 065
     Dates: end: 2017
  5. SANDOSTATIN LAR DEPOT [Suspect]
     Active Substance: OCTREOTIDE ACETATE
     Dosage: 30 MG, Q2W
     Route: 030
     Dates: start: 20120118
  6. SERTRALINE [Concomitant]
     Active Substance: SERTRALINE HYDROCHLORIDE
     Indication: PRODUCT USED FOR UNKNOWN INDICATION
     Dosage: 100 MG, QD
     Route: 065
  7. RAMIPRIL. [Concomitant]
     Active Substance: RAMIPRIL
     Indication: PRODUCT USED FOR UNKNOWN INDICATION
     Route: 065
  8. CYCLOBENZAPRINE. [Concomitant]
     Active Substance: CYCLOBENZAPRINE
     Indication: OSTEOARTHRITIS
     Dosage: 10 MG
     Route: 065
  9. SANDOSTATIN LAR DEPOT [Suspect]
     Active Substance: OCTREOTIDE ACETATE
  10. MAGNESIUM [Suspect]
     Active Substance: MAGNESIUM
     Indication: BLOOD COUNT ABNORMAL
     Route: 042
  11. SLOW K [Suspect]
     Active Substance: POTASSIUM CHLORIDE
     Indication: BLOOD COUNT ABNORMAL
     Dosage: UNK
     Route: 065
     Dates: end: 2017
  12. SANDOSTATIN [Suspect]
     Active Substance: OCTREOTIDE ACETATE
     Indication: NEUROENDOCRINE TUMOUR
     Dosage: 50 UG, UNK
     Route: 058
     Dates: start: 20111220
  13. SANDOSTATIN [Suspect]
     Active Substance: OCTREOTIDE ACETATE
  14. SANDOSTATIN [Suspect]
     Active Substance: OCTREOTIDE ACETATE
  15. HYDROCHLOROTHIAZIDE. [Concomitant]
     Active Substance: HYDROCHLOROTHIAZIDE
     Indication: BLOOD PRESSURE ABNORMAL
     Dosage: 25 MG, UNK
     Route: 065
     Dates: end: 2017
  16. HYDROCHLOROTHIAZIDE. [Concomitant]
     Active Substance: HYDROCHLOROTHIAZIDE
     Dosage: 12.5 MG, QD
     Route: 065
  17. CELEBREX [Concomitant]
     Active Substance: CELECOXIB
     Indication: OSTEOARTHRITIS
     Dosage: 100 MG, BID
     Route: 065

REACTIONS (26)
  - Nasopharyngitis [Unknown]
  - Ear infection [Unknown]
  - Inappropriate schedule of product administration [Unknown]
  - Neuroendocrine tumour [Unknown]
  - Abdominal pain upper [Unknown]
  - Vomiting [Unknown]
  - Nausea [Unknown]
  - Hypotension [Unknown]
  - Fatigue [Unknown]
  - Emotional distress [Unknown]
  - Blood pressure increased [Unknown]
  - Lung neoplasm malignant [Unknown]
  - Anxiety [Unknown]
  - Pyrexia [Unknown]
  - Muscle spasms [Unknown]
  - Disturbance in attention [Unknown]
  - Cystitis [Unknown]
  - Dyspepsia [Unknown]
  - Malignant neoplasm progression [Unknown]
  - Tremor [Recovering/Resolving]
  - Blood count abnormal [Unknown]
  - Abdominal pain [Recovered/Resolved]
  - Second primary malignancy [Unknown]
  - Cough [Unknown]
  - Asthenia [Unknown]
  - Diarrhoea [Unknown]

NARRATIVE: CASE EVENT DATE: 20131214
